FAERS Safety Report 17082741 (Version 1)
Quarter: 2019Q4

REPORT INFORMATION
  Report Type: Spontaneous
  Country: DE (occurrence: DE)
  Receive Date: 20191127
  Receipt Date: 20191127
  Transmission Date: 20200122
  Serious: Yes (Hospitalization)
  Sender: FDA-Public Use
  Company Number: DE-US-PROVELL PHARMACEUTICALS LLC-E2B_90071765

PATIENT
  Sex: Female

DRUGS (1)
  1. EUTHYROX [Suspect]
     Active Substance: LEVOTHYROXINE SODIUM
     Indication: PRODUCT USED FOR UNKNOWN INDICATION

REACTIONS (6)
  - Femoral neck fracture [Unknown]
  - Alopecia [Not Recovered/Not Resolved]
  - Spinal pain [Recovered/Resolved]
  - Thyroid disorder [Recovered/Resolved]
  - Fall [Unknown]
  - Tremor [Recovered/Resolved]
